FAERS Safety Report 6344335-4 (Version None)
Quarter: 2009Q3

REPORT INFORMATION
  Report Type: 
  Country: None (occurrence: None)
  Receive Date: 20090821
  Receipt Date: 20090427
  Transmission Date: 20100115
  Serious: No
  Sender: FDA-Public Use
  Company Number: 8045455

PATIENT
  Age: 70 Year
  Sex: Female
  Weight: 56.25 kg

DRUGS (20)
  1. CIMZIA [Suspect]
     Indication: CROHN'S DISEASE
     Dosage: 400 MG SC
     Route: 058
     Dates: start: 20081014, end: 20090301
  2. FENTANYL [Concomitant]
  3. OXYCONTIN [Concomitant]
  4. BONIVA [Concomitant]
  5. ZOLOFT [Concomitant]
  6. ONDANSETRON [Concomitant]
  7. OMEPRAZOLE [Concomitant]
  8. TRIAMTEREN HCT [Concomitant]
  9. ASTELIN [Concomitant]
  10. VITAMIN D [Concomitant]
  11. K-TAB [Concomitant]
  12. VITAMIN B-12 [Concomitant]
  13. LISINOPRIL [Concomitant]
  14. ESTRING [Concomitant]
  15. RESTASIS [Concomitant]
  16. MULTI-VITAMIN [Concomitant]
  17. DIPH/AAPROP [Concomitant]
  18. PENTASA [Concomitant]
  19. ULTRA LACTOSE [Concomitant]
  20. DICYCLOMINE [Concomitant]

REACTIONS (9)
  - ABDOMINAL PAIN UPPER [None]
  - FUNGAL INFECTION [None]
  - HEADACHE [None]
  - NAUSEA [None]
  - OEDEMA PERIPHERAL [None]
  - ORAL CANDIDIASIS [None]
  - OROPHARYNGEAL PAIN [None]
  - PARAESTHESIA [None]
  - RASH [None]
